FAERS Safety Report 7266609-5 (Version None)
Quarter: 2011Q1

REPORT INFORMATION
  Report Type: 
  Country: None (occurrence: None)
  Receive Date: 20110131
  Receipt Date: 20110121
  Transmission Date: 20110831
  Serious: Yes (Death)
  Sender: FDA-Public Use
  Company Number: BR-GENENTECH-312911

PATIENT
  Age: 23 Year
  Sex: Female

DRUGS (1)
  1. RITUXIMAB [Suspect]
     Indication: SYSTEMIC LUPUS ERYTHEMATOSUS
     Dosage: UNK
     Route: 065
     Dates: start: 20100821, end: 20100904

REACTIONS (2)
  - RENAL FAILURE ACUTE [None]
  - KIDNEY INFECTION [None]
